FAERS Safety Report 9011192 (Version 6)
Quarter: 2015Q1

REPORT INFORMATION
  Report Type: Spontaneous
  Country: US (occurrence: US)
  Receive Date: 20130109
  Receipt Date: 20150210
  Transmission Date: 20150721
  Serious: No
  Sender: FDA-Public Use
  Company Number: US-009507513-1301USA003676

PATIENT
  Sex: Male
  Weight: 90.7 kg

DRUGS (2)
  1. FINASTERIDE. [Suspect]
     Active Substance: FINASTERIDE
     Indication: ANDROGENETIC ALOPECIA
     Dosage: 1.25 MG, UNK
     Route: 048
     Dates: start: 2008
  2. PROPECIA [Suspect]
     Active Substance: FINASTERIDE
     Indication: ANDROGENETIC ALOPECIA
     Dosage: 1 MG, QD
     Route: 048
     Dates: start: 1998, end: 2008

REACTIONS (30)
  - Anxiety [Unknown]
  - Type 2 diabetes mellitus [Not Recovered/Not Resolved]
  - Cataract operation [Unknown]
  - Intraocular lens implant [Unknown]
  - Sexual dysfunction [Not Recovered/Not Resolved]
  - Hypogonadism [Not Recovered/Not Resolved]
  - Blood cholesterol increased [Unknown]
  - Urine flow decreased [Unknown]
  - Cognitive disorder [Not Recovered/Not Resolved]
  - Large intestine polyp [Unknown]
  - Cyst removal [Unknown]
  - Pollakiuria [Unknown]
  - Haematuria [Unknown]
  - Depression [Not Recovered/Not Resolved]
  - Off label use [Unknown]
  - Libido decreased [Unknown]
  - Ejaculation disorder [Unknown]
  - Prostatic specific antigen decreased [Unknown]
  - Asthenia [Recovering/Resolving]
  - Large intestinal polypectomy [Unknown]
  - Blood testosterone decreased [Not Recovered/Not Resolved]
  - Glaucoma [Not Recovered/Not Resolved]
  - Organic erectile dysfunction [Unknown]
  - Hypertension [Not Recovered/Not Resolved]
  - Gout [Not Recovered/Not Resolved]
  - Hair transplant [Recovered/Resolved]
  - Drug ineffective [Unknown]
  - Sleep apnoea syndrome [Unknown]
  - Wrong technique in drug usage process [Unknown]
  - Drug ineffective [Unknown]

NARRATIVE: CASE EVENT DATE: 19981123
